FAERS Safety Report 20373366 (Version 1)
Quarter: 2022Q1

REPORT INFORMATION
  Report Type: Report from Study
  Country: US (occurrence: US)
  Receive Date: 20220125
  Receipt Date: 20220125
  Transmission Date: 20220423
  Serious: Yes (Other)
  Sender: FDA-Public Use
  Company Number: US-BRISTOL-MYERS SQUIBB COMPANY-BMS-2022-010083

PATIENT
  Age: 64 Year
  Sex: Female
  Weight: 68.039 kg

DRUGS (1)
  1. ABATACEPT [Suspect]
     Active Substance: ABATACEPT
     Indication: Rheumatoid arthritis
     Dosage: 125 MILLIGRAM, QWK
     Route: 058

REACTIONS (4)
  - Limb injury [Recovering/Resolving]
  - Fall [Unknown]
  - Pain [Unknown]
  - Product temperature excursion issue [Unknown]
